FAERS Safety Report 4804833-9 (Version None)
Quarter: 2005Q4

REPORT INFORMATION
  Report Type: 
  Country: None (occurrence: None)
  Receive Date: 20051017
  Receipt Date: 20050930
  Transmission Date: 20060501
  Serious: Yes (Death)
  Sender: FDA-Public Use
  Company Number: US-2005-011905

PATIENT
  Age: 47 Year
  Sex: Male
  Weight: 64.1 kg

DRUGS (8)
  1. BETASERON (INTERFERON BETA-1B)INJECTION, 250G?G [Suspect]
     Indication: SECONDARY PROGRESSIVE MULTIPLE SCLEROSIS
     Dosage: SUBCUTANEOUS
     Route: 058
     Dates: start: 19980914, end: 20030520
  2. TRILEPTAL [Concomitant]
  3. AZATHIOPRINE [Concomitant]
  4. PROPRANOLOL [Concomitant]
  5. ARTANE [Concomitant]
  6. BACLOFEN [Concomitant]
  7. DOCUSATE SODIUM (DOCUSATE SODIUM) [Concomitant]
  8. IPRATROPIUM BROMIDE [Concomitant]

REACTIONS (1)
  - LOSS OF CONSCIOUSNESS [None]
